FAERS Safety Report 19993861 (Version 2)
Quarter: 2021Q4

REPORT INFORMATION
  Report Type: Spontaneous
  Country: CN (occurrence: CN)
  Receive Date: 20211025
  Receipt Date: 20211028
  Transmission Date: 20220303
  Serious: Yes (Other)
  Sender: FDA-Public Use
  Company Number: CN-BAUSCH-BL-2021-035145

PATIENT
  Age: 30 Year
  Sex: Male

DRUGS (2)
  1. ACYCLOVIR [Suspect]
     Active Substance: ACYCLOVIR
     Indication: Conjunctivitis
     Dosage: 1 DROP
     Route: 047
     Dates: start: 20210929, end: 20210929
  2. ACYCLOVIR [Suspect]
     Active Substance: ACYCLOVIR
     Indication: Antiviral treatment

REACTIONS (1)
  - Blepharitis allergic [Recovering/Resolving]

NARRATIVE: CASE EVENT DATE: 20210929
